FAERS Safety Report 7250293-0 (Version None)
Quarter: 2011Q1

REPORT INFORMATION
  Report Type: 
  Country: None (occurrence: None)
  Receive Date: 20110118
  Receipt Date: 20110104
  Transmission Date: 20110831
  Serious: Yes (Other)
  Sender: FDA-Public Use
  Company Number: 024817

PATIENT
  Sex: Male

DRUGS (12)
  1. TEPRENONE [Concomitant]
  2. FOLIC ACID [Concomitant]
  3. CERTOLIZUMAB PEGOL (CERTOLIZUMAB PEGOL) [Suspect]
     Indication: RHEUMATOID ARTHRITIS
     Dosage: (200 MG 1X/2 WEEKS, 200MG/BIW SUBCUTANEOUS)
     Route: 058
     Dates: start: 20100705
  4. ISONIAZID [Concomitant]
  5. NIFEDIPINE [Concomitant]
  6. HYALURONATE SODIUM [Concomitant]
  7. MOSAPRIDE [Concomitant]
  8. ARTIFICIAL TEARS /00445101/ [Concomitant]
  9. PARACETAMOL [Concomitant]
  10. METHYLPREDNISOLONE [Concomitant]
  11. NABUMETONE [Concomitant]
  12. TRAMADOL HCL [Concomitant]

REACTIONS (2)
  - ABORTION INDUCED [None]
  - PREGNANCY [None]
